FAERS Safety Report 14225534 (Version 2)
Quarter: 2017Q4

REPORT INFORMATION
  Report Type: Spontaneous
  Country: US (occurrence: US)
  Receive Date: 20171127
  Receipt Date: 20171129
  Transmission Date: 20180321
  Serious: Yes (Other)
  Sender: FDA-Public Use
  Company Number: US-VALIDUS PHARMACEUTICALS LLC-US-2017VAL001564

PATIENT
  Sex: Male

DRUGS (8)
  1. PREDNISONE. [Suspect]
     Active Substance: PREDNISONE
     Dosage: 30 MG, BID
     Route: 065
  2. PENTOXIFYLLINE. [Suspect]
     Active Substance: PENTOXIFYLLINE
     Indication: EOSINOPHILIC GRANULOMATOSIS WITH POLYANGIITIS
     Dosage: 400 MG, TID
     Route: 048
  3. METHYLPREDNISOLONE. [Suspect]
     Active Substance: METHYLPREDNISOLONE
     Indication: EOSINOPHILIC GRANULOMATOSIS WITH POLYANGIITIS
     Dosage: 80 MG, QD
     Route: 065
  4. METHYLPREDNISOLONE. [Suspect]
     Active Substance: METHYLPREDNISOLONE
     Dosage: UNK
     Route: 065
  5. CYCLOPHOSPHAMIDE. [Suspect]
     Active Substance: CYCLOPHOSPHAMIDE
     Dosage: 1500 MG, UNK
     Route: 040
  6. METHYLPREDNISOLONE. [Suspect]
     Active Substance: METHYLPREDNISOLONE
     Dosage: 250 MG, EVERY 6 HOURS
     Route: 042
  7. CYCLOPHOSPHAMIDE. [Suspect]
     Active Substance: CYCLOPHOSPHAMIDE
     Indication: EOSINOPHILIC GRANULOMATOSIS WITH POLYANGIITIS
     Dosage: 1500 MG, UNK
     Route: 065
  8. PREDNISONE. [Suspect]
     Active Substance: PREDNISONE
     Indication: EOSINOPHILIC GRANULOMATOSIS WITH POLYANGIITIS
     Dosage: 10 MG, QD
     Route: 065

REACTIONS (18)
  - Therapeutic response decreased [Unknown]
  - Rheumatoid factor increased [Unknown]
  - Sensory loss [Unknown]
  - Skin plaque [Unknown]
  - Erythema [Unknown]
  - Red blood cell sedimentation rate increased [Unknown]
  - Ulcer [Unknown]
  - Cardiolipin antibody positive [Unknown]
  - Peripheral artery thrombosis [Unknown]
  - Diabetes mellitus [Unknown]
  - Eosinophilic granulomatosis with polyangiitis [Unknown]
  - Purpura [Unknown]
  - Skin erosion [Unknown]
  - Dry gangrene [Unknown]
  - Blister [Unknown]
  - C-reactive protein increased [Unknown]
  - Peripheral artery occlusion [Unknown]
  - Disease progression [Unknown]
